FAERS Safety Report 8237430-6 (Version None)
Quarter: 2012Q1

REPORT INFORMATION
  Report Type: 
  Country: None (occurrence: None)
  Receive Date: 20120327
  Receipt Date: 20120319
  Transmission Date: 20120608
  Serious: Yes (Other)
  Sender: FDA-Public Use
  Company Number: US-BAYER-2011-114303

PATIENT
  Age: 29 Year
  Sex: Female
  Weight: 60.771 kg

DRUGS (11)
  1. YASMIN [Suspect]
     Indication: CONTRACEPTION
     Dosage: UNK
     Route: 048
     Dates: start: 20030910, end: 20070828
  2. LOVAZA [Concomitant]
     Dosage: 1000 MG, QD
     Route: 048
     Dates: start: 20080326, end: 20100603
  3. VITAMIN D [Concomitant]
     Dosage: UNK UNK, QD
     Route: 048
     Dates: start: 20080326
  4. ACIPHEX [Concomitant]
     Dosage: 20 MG, QD
     Dates: start: 20080215
  5. CALCIUM +VIT D [Concomitant]
     Dosage: UNK UNK, QD
     Route: 048
     Dates: start: 20080327
  6. MULTI-VITAMIN [Concomitant]
     Dosage: UNK UNK, QD
     Route: 048
     Dates: start: 20080325, end: 20100603
  7. LOESTRIN FE 1/20 [Concomitant]
     Dosage: UNK
     Dates: start: 20071116, end: 20090109
  8. AZITHROMYCIN [Concomitant]
     Dosage: 500 MG, QD
     Route: 048
  9. AZITHROMYCIN [Concomitant]
     Dosage: 500 MG, DAILY FOR 3 DAYS
     Route: 048
     Dates: start: 20080325
  10. METOCLOPRAMIDE [Concomitant]
     Dosage: 10 MG, HS
     Route: 048
     Dates: start: 20080303, end: 20080326
  11. EPIPEN [Concomitant]
     Dosage: 0.3 MG, UNK
     Dates: start: 20080303

REACTIONS (5)
  - BILIARY DYSKINESIA [None]
  - BILE OUTPUT ABNORMAL [None]
  - NAUSEA [None]
  - PAIN [None]
  - CHOLECYSTITIS [None]
